FAERS Safety Report 7734690-2 (Version None)
Quarter: 2011Q3

REPORT INFORMATION
  Report Type: 
  Country: None (occurrence: None)
  Receive Date: 20110907
  Receipt Date: 20110826
  Transmission Date: 20111222
  Serious: Yes (Other)
  Sender: FDA-Public Use
  Company Number: US-ELI_LILLY_AND_COMPANY-US201108008782

PATIENT
  Sex: Female

DRUGS (3)
  1. ATIVAN [Concomitant]
     Dosage: 1 MG, EACH EVENING
  2. ZYPREXA [Suspect]
     Dosage: 20 MG, UNK
     Route: 048
  3. ZYPREXA [Suspect]
     Dosage: UNK

REACTIONS (1)
  - WEIGHT INCREASED [None]
